FAERS Safety Report 14656581 (Version 1)
Quarter: 2018Q1

REPORT INFORMATION
  Report Type: Spontaneous
  Country: GB (occurrence: GB)
  Receive Date: 20180319
  Receipt Date: 20180319
  Transmission Date: 20180509
  Serious: Yes (Other)
  Sender: FDA-Public Use
  Company Number: GB-TEVA-2018-GB-870341

PATIENT
  Age: 41 Year
  Sex: Female
  Weight: 84 kg

DRUGS (14)
  1. MIRTAZAPINE. [Suspect]
     Active Substance: MIRTAZAPINE
     Route: 065
  2. PIROXICAM. [Concomitant]
     Active Substance: PIROXICAM
     Dosage: APPLY AS DIRECTED.
     Route: 065
  3. QVAR [Concomitant]
     Active Substance: BECLOMETHASONE DIPROPIONATE
     Dosage: 4 DOSAGE FORMS DAILY;
     Route: 055
  4. ORAMORPH [Concomitant]
     Active Substance: MORPHINE SULFATE
     Dosage: 5 ML DAILY; EACH NIGHT.
     Route: 065
  5. FEXOFENADINE [Concomitant]
     Active Substance: FEXOFENADINE\FEXOFENADINE HYDROCHLORIDE
     Dosage: 1 DOSAGE FORMS DAILY;
     Route: 065
  6. ELLESTE DUET [Concomitant]
     Dosage: 1 DOSAGE FORMS DAILY;
     Route: 065
  7. MONTELUKAST [Concomitant]
     Active Substance: MONTELUKAST SODIUM
     Dosage: 1 DOSAGE FORMS DAILY; AT NIGHT.
     Route: 065
  8. ORLISTAT. [Concomitant]
     Active Substance: ORLISTAT
     Dosage: 3 DOSAGE FORMS DAILY;
     Route: 065
  9. JEXT [Concomitant]
     Dosage: USE AS DIRECTED.
     Route: 065
  10. FERROUS FUMARATE [Concomitant]
     Active Substance: FERROUS FUMARATE
     Dosage: 3 DOSAGE FORMS DAILY;
     Route: 065
  11. VENTOLIN [Concomitant]
     Active Substance: ALBUTEROL SULFATE
     Route: 065
  12. EMERADE [Concomitant]
     Dosage: USE AS DIRECTED.
     Route: 065
  13. OMEPRAZOLE. [Concomitant]
     Active Substance: OMEPRAZOLE
     Dosage: 1 DOSAGE FORMS DAILY;
     Route: 065
  14. DICLOFENAC SODIUM. [Concomitant]
     Active Substance: DICLOFENAC SODIUM
     Dosage: 3 DOSAGE FORMS DAILY; AS DIRECTED.
     Route: 065

REACTIONS (2)
  - Aggression [Recovered/Resolved]
  - Hallucinations, mixed [Recovered/Resolved]
